FAERS Safety Report 17330103 (Version 2)
Quarter: 2020Q1

REPORT INFORMATION
  Report Type: Spontaneous
  Country: US (occurrence: US)
  Receive Date: 20200127
  Receipt Date: 20200313
  Transmission Date: 20200409
  Serious: Yes (Other)
  Sender: FDA-Public Use
  Company Number: US-REGENERON PHARMACEUTICALS, INC.-2019-69489

PATIENT

DRUGS (5)
  1. EYLEA [Suspect]
     Active Substance: AFLIBERCEPT
     Dosage: Q4W, BOTH EYES
     Route: 031
     Dates: start: 20191123, end: 20191123
  2. EYLEA [Suspect]
     Active Substance: AFLIBERCEPT
     Dosage: Q4W, BOTH EYES
     Route: 031
     Dates: start: 201910, end: 201910
  3. EYLEA [Suspect]
     Active Substance: AFLIBERCEPT
     Indication: MACULAR OEDEMA
     Dosage: Q4W, BOTH EYES
     Route: 031
     Dates: start: 201903
  4. EYLEA [Suspect]
     Active Substance: AFLIBERCEPT
     Dosage: BOTH EYES
     Route: 031
     Dates: start: 202001, end: 202001
  5. EYLEA [Suspect]
     Active Substance: AFLIBERCEPT
     Dosage: BOTH EYES, LAST DOSE
     Route: 031
     Dates: start: 20200304, end: 20200304

REACTIONS (7)
  - Impaired driving ability [Unknown]
  - Drug ineffective [Unknown]
  - Eye disorder [Unknown]
  - Blood glucose abnormal [Unknown]
  - Hypertension [Unknown]
  - Eye haemorrhage [Not Recovered/Not Resolved]
  - Visual acuity reduced [Recovering/Resolving]

NARRATIVE: CASE EVENT DATE: 202001
